FAERS Safety Report 9913482 (Version 1)
Quarter: 2014Q1

REPORT INFORMATION
  Report Type: Spontaneous
  Country: US (occurrence: US)
  Receive Date: 20140220
  Receipt Date: 20140220
  Transmission Date: 20141002
  Serious: Yes (Other)
  Sender: FDA-Public Use
  Company Number: US-SA-2014SA020785

PATIENT
  Age: 63 Year
  Sex: Male

DRUGS (3)
  1. LANTUS SOLOSTAR [Suspect]
     Indication: DIABETES MELLITUS
     Dosage: TAKEN FROM: COUPLE OF YEARS AGO. DOSE:15 UNIT(S)
     Route: 058
  2. SOLOSTAR [Concomitant]
     Dosage: TAKEN FROM: COUPLE OF YEARS AGO.
  3. OTHER ANTIHYPERTENSIVES [Concomitant]
     Indication: HYPERTENSION

REACTIONS (2)
  - Leg amputation [Unknown]
  - Blood glucose abnormal [Unknown]
